FAERS Safety Report 5114195-8 (Version None)
Quarter: 2006Q3

REPORT INFORMATION
  Report Type: 
  Country: None (occurrence: None)
  Receive Date: 20060925
  Receipt Date: 20060905
  Transmission Date: 20061208
  Serious: Yes (Life-Threatening)
  Sender: FDA-Public Use
  Company Number: JP-SANOFI-SYNTHELABO-A01200607463

PATIENT
  Sex: Male
  Weight: 58 kg

DRUGS (6)
  1. FLUOROURACIL [Suspect]
     Dosage: 450 MG/BODY=279.5 MG/M2 IN BOLUS THEN 3200 MG/BODY=1987.6 MG/M2 AS INFUSION, D1-2
     Route: 042
     Dates: start: 20060831, end: 20060901
  2. OXALIPLATIN [Suspect]
     Dosage: 100 MG/BODY=62.1 MG/M2, INFUSION D1
     Route: 042
     Dates: start: 20060831, end: 20060831
  3. PREDNISOLONE SODIUM SUCCINATE INJ [Concomitant]
     Route: 042
     Dates: start: 20060902, end: 20060903
  4. DEXAMETHASONE TAB [Concomitant]
     Route: 042
     Dates: start: 20060621, end: 20060831
  5. LEUCOVORIN CALCIUM [Concomitant]
     Route: 041
     Dates: start: 20060621, end: 20060831
  6. AZASETRON [Concomitant]
     Route: 041
     Dates: start: 20060621, end: 20060831

REACTIONS (4)
  - DEPRESSED LEVEL OF CONSCIOUSNESS [None]
  - ENCEPHALOPATHY [None]
  - LEUKOPENIA [None]
  - NEUTROPENIA [None]
